FAERS Safety Report 9974072 (Version 1)
Quarter: 2014Q1

REPORT INFORMATION
  Report Type: Spontaneous
  Country: US (occurrence: US)
  Receive Date: 20140306
  Receipt Date: 20140306
  Transmission Date: 20141002
  Serious: Yes (Life-Threatening, Hospitalization, Disabling, Other)
  Sender: FDA-Public Use
  Company Number: US-GLAXOSMITHKLINE-A1062698A

PATIENT
  Sex: Female

DRUGS (1)
  1. ARRANON [Suspect]
     Indication: MYCOSIS FUNGOIDES
     Dosage: 2112MG PER DAY
     Route: 042

REACTIONS (2)
  - Mental status changes [Unknown]
  - Depressed level of consciousness [Unknown]
